FAERS Safety Report 17236591 (Version 1)
Quarter: 2020Q1

REPORT INFORMATION
  Report Type: Spontaneous
  Country: CN (occurrence: CN)
  Receive Date: 20200106
  Receipt Date: 20200106
  Transmission Date: 20200409
  Serious: Yes (Other)
  Sender: FDA-Public Use
  Company Number: CN-PFIZER INC-2020001879

PATIENT
  Age: 70 Year
  Sex: Male
  Weight: 60 kg

DRUGS (5)
  1. PRUCALOPRIDE SUCCINATE [Concomitant]
     Active Substance: PRUCALOPRIDE SUCCINATE
     Dosage: 2 MG, 1X/DAY
     Route: 048
     Dates: start: 20191205
  2. LOW MOLECULAR WEIGHT HEPARIN, CALCIUM SALT [Concomitant]
     Indication: ANTICOAGULANT THERAPY
     Dosage: 4100 IU, 2X/DAY
     Route: 058
     Dates: start: 20191217, end: 20191220
  3. DIFLUCAN [Suspect]
     Active Substance: FLUCONAZOLE
     Indication: ANTI-INFECTIVE THERAPY
     Dosage: 0.4 G, 1X/DAY
     Route: 041
     Dates: start: 20191215, end: 20191220
  4. BEI LAI [Concomitant]
     Indication: SPUTUM INCREASED
     Dosage: 30 MG, 3X/DAY
     Route: 048
     Dates: start: 20191215, end: 20191220
  5. SPIRONOLACTONE. [Concomitant]
     Active Substance: SPIRONOLACTONE
     Indication: POLYURIA
     Dosage: 20 MG, 1X/DAY
     Route: 048
     Dates: start: 20191215, end: 20191220

REACTIONS (5)
  - Tachyarrhythmia [Recovered/Resolved]
  - Anaemia [Recovered/Resolved]
  - Atrial fibrillation [Recovered/Resolved]
  - Electrocardiogram ST segment abnormal [Recovered/Resolved]
  - Palpitations [Recovered/Resolved]

NARRATIVE: CASE EVENT DATE: 20191220
